FAERS Safety Report 5880113-8 (Version None)
Quarter: 2008Q3

REPORT INFORMATION
  Report Type: 
  Country: None (occurrence: None)
  Receive Date: 20080912
  Receipt Date: 20080904
  Transmission Date: 20090109
  Serious: Yes (Life-Threatening)
  Sender: FDA-Public Use
  Company Number: NL-WYE-G02113708

PATIENT
  Age: 51 Year
  Sex: Female
  Weight: 61 kg

DRUGS (4)
  1. EFFEXOR XR [Suspect]
     Indication: MENOPAUSAL SYMPTOMS
     Dates: start: 20060101
  2. CHANTIX [Suspect]
     Indication: SMOKING CESSATION THERAPY
     Dosage: UNK
     Dates: start: 20080517
  3. CHANTIX [Suspect]
  4. CHANTIX [Suspect]

REACTIONS (9)
  - ABNORMAL BEHAVIOUR [None]
  - ABNORMAL DREAMS [None]
  - DEREALISATION [None]
  - LIBIDO INCREASED [None]
  - MEMORY IMPAIRMENT [None]
  - PARAESTHESIA [None]
  - POOR QUALITY SLEEP [None]
  - ROAD TRAFFIC ACCIDENT [None]
  - VISUAL ACUITY REDUCED [None]
